FAERS Safety Report 7051191-8 (Version None)
Quarter: 2010Q4

REPORT INFORMATION
  Report Type: 
  Country: None (occurrence: None)
  Receive Date: 20101019
  Receipt Date: 20101012
  Transmission Date: 20110411
  Serious: Yes (Hospitalization)
  Sender: FDA-Public Use
  Company Number: PHHO2010SE05956

PATIENT
  Sex: Male
  Weight: 78 kg

DRUGS (4)
  1. TASIGNA [Suspect]
     Indication: GASTROINTESTINAL STROMAL TUMOUR
     Dosage: 400 MG, BID
     Route: 048
     Dates: start: 20091222, end: 20100401
  2. OMEPRAZOLE [Concomitant]
  3. DUROFERON [Concomitant]
  4. B-KOMBIN FORTE [Concomitant]

REACTIONS (2)
  - BLOOD BILIRUBIN INCREASED [None]
  - HEPATIC FAILURE [None]
